FAERS Safety Report 8325033 (Version 4)
Quarter: 2013Q3

REPORT INFORMATION
  Report Type: Report from Study
  Country: DE (occurrence: DE)
  Receive Date: 20120106
  Receipt Date: 20130909
  Transmission Date: 20140515
  Serious: Yes (Hospitalization)
  Sender: FDA-Public Use
  Company Number: DE-UCBSA-048631

PATIENT
  Sex: Female
  Weight: 95 kg

DRUGS (8)
  1. CERTOLIZUMAB PEGOL [Suspect]
     Indication: RHEUMATOID ARTHRITIS
     Route: 058
     Dates: start: 20110929, end: 20111025
  2. CERTOLIZUMAB PEGOL [Suspect]
     Indication: RHEUMATOID ARTHRITIS
     Route: 058
     Dates: end: 20120224
  3. TRAMADOL [Concomitant]
     Indication: HERPES ZOSTER
     Dates: start: 20111101, end: 20111110
  4. MTX [Concomitant]
     Indication: RHEUMATOID ARTHRITIS
     Dates: start: 200907
  5. ZOSTEX [Concomitant]
     Indication: HERPES ZOSTER
     Dates: start: 20111101, end: 20111107
  6. NOVALGIN [Concomitant]
     Indication: HERPES ZOSTER
     Dosage: SOLUTION/DROPS
     Dates: start: 20111101, end: 20111110
  7. LYRICA [Concomitant]
     Indication: HERPES ZOSTER
     Dates: end: 20111110
  8. LYRICA [Concomitant]
     Indication: HERPES ZOSTER
     Dates: start: 20111111, end: 20111201

REACTIONS (2)
  - Psoriasis [Recovered/Resolved]
  - Herpes zoster [Recovering/Resolving]
